FAERS Safety Report 8418137 (Version 2)
Quarter: 2013Q2

REPORT INFORMATION
  Report Type: Spontaneous
  Country: US (occurrence: None)
  Receive Date: 20120207
  Receipt Date: 20130628
  Transmission Date: 20140414
  Serious: Yes (Death, Hospitalization)
  Sender: FDA-Public Use
  Company Number: 2012P1003734

PATIENT
  Age: 81 Year
  Sex: Male

DRUGS (2)
  1. INFUMORPH [Suspect]
     Route: 037
  2. BUPIVACAINE [Suspect]
     Route: 037

REACTIONS (5)
  - Dyspnoea [None]
  - Condition aggravated [None]
  - Condition aggravated [None]
  - Pneumonia aspiration [None]
  - Respiratory failure [None]
